FAERS Safety Report 26107899 (Version 1)
Quarter: 2025Q4

REPORT INFORMATION
  Report Type: Spontaneous
  Country: US (occurrence: None)
  Receive Date: 20251130
  Receipt Date: 20251130
  Transmission Date: 20260117
  Serious: Yes (Hospitalization)
  Sender: FDA-CTU
  Company Number: None

PATIENT
  Sex: Male

DRUGS (1)
  1. NUCALA [Suspect]
     Active Substance: MEPOLIZUMAB
     Indication: Chronic obstructive pulmonary disease
     Dosage: OTHER QUANTITY : 1 PEN UNDER THE SKIN ;?FREQUENCY : MONTHLY;?
     Route: 058
     Dates: start: 20250917

REACTIONS (1)
  - Drug ineffective [None]
